FAERS Safety Report 25775372 (Version 2)
Quarter: 2025Q3

REPORT INFORMATION
  Report Type: Spontaneous
  Country: JP (occurrence: JP)
  Receive Date: 20250909
  Receipt Date: 20250919
  Transmission Date: 20251021
  Serious: No
  Sender: ASTELLAS
  Company Number: JP-ASTELLAS-2025-AER-048598

PATIENT
  Sex: Male

DRUGS (1)
  1. MIRABEGRON [Suspect]
     Active Substance: MIRABEGRON
     Indication: Hypertonic bladder
     Route: 048

REACTIONS (1)
  - Dysuria [Unknown]
